FAERS Safety Report 12955066 (Version 2)
Quarter: 2017Q1

REPORT INFORMATION
  Report Type: Spontaneous
  Country: US (occurrence: US)
  Receive Date: 20161118
  Receipt Date: 20170118
  Transmission Date: 20170428
  Serious: Yes (Hospitalization, Other)
  Sender: FDA-Public Use
  Company Number: US-BTG INTERNATIONAL LTD-BTG01100

PATIENT

DRUGS (3)
  1. CROFAB [Suspect]
     Active Substance: CROTALIDAE POLYVALENT IMMUNE FAB (OVINE)
     Dosage: 6 VIALS OF CROFAB AND THEN ANOTHER 4 VIALS
     Dates: start: 20161106, end: 20161106
  2. CROFAB [Suspect]
     Active Substance: CROTALIDAE POLYVALENT IMMUNE FAB (OVINE)
     Indication: SNAKE BITE
     Dosage: 1 VIAL
     Dates: start: 20161105, end: 20161105
  3. NORMAL SALINE [Concomitant]
     Active Substance: SODIUM CHLORIDE
     Indication: SNAKE BITE

REACTIONS (7)
  - Blood fibrinogen decreased [Unknown]
  - Pain [Unknown]
  - Shock [Unknown]
  - Swollen tongue [Unknown]
  - Lip swelling [Unknown]
  - Hypotension [Unknown]
  - Local reaction [Unknown]

NARRATIVE: CASE EVENT DATE: 20161105
